FAERS Safety Report 6541938-9 (Version None)
Quarter: 2010Q1

REPORT INFORMATION
  Report Type: 
  Country: None (occurrence: None)
  Receive Date: 20100119
  Receipt Date: 20100111
  Transmission Date: 20100710
  Serious: Yes (Hospitalization)
  Sender: FDA-Public Use
  Company Number: GB-JNJFOC-20080402548

PATIENT
  Sex: Female
  Weight: 53 kg

DRUGS (9)
  1. REMICADE [Suspect]
     Indication: RHEUMATOID ARTHRITIS
     Route: 042
  2. SULPHASALAZINE [Concomitant]
  3. METHOTREXATE [Concomitant]
  4. CO-PRAXAMOL [Concomitant]
  5. FERROUS SULFATE TAB [Concomitant]
  6. FOLIC ACID [Concomitant]
  7. HYDROXYCHLOROQUINE SULFATE [Concomitant]
  8. LEDERFEN [Concomitant]
  9. OMEPRAZOLE [Concomitant]

REACTIONS (1)
  - TIBIA FRACTURE [None]
